FAERS Safety Report 10516336 (Version 2)
Quarter: 2014Q4

REPORT INFORMATION
  Report Type: Spontaneous
  Country: US (occurrence: US)
  Receive Date: 20141014
  Receipt Date: 20141014
  Transmission Date: 20150528
  Serious: Yes (Other)
  Sender: FDA-Public Use
  Company Number: US-MYLANLABS-2008S1010553

PATIENT

DRUGS (4)
  1. CYSTEAMINE /00492501/ [Concomitant]
     Dosage: UNK
     Route: 047
  2. MERCAPTOPURINE. [Concomitant]
     Active Substance: MERCAPTOPURINE
     Dosage: 50 MG,QD
     Route: 048
  3. CYSTAGON [Suspect]
     Active Substance: CYSTEAMINE BITARTRATE
     Indication: CYSTINOSIS
     Dosage: 2400MG,QID
     Route: 048
  4. ELECTROLYTE                        /00909901/ [Concomitant]
     Dosage: UNK

REACTIONS (1)
  - Renal cell carcinoma [Recovered/Resolved]

NARRATIVE: CASE EVENT DATE: 2008
